FAERS Safety Report 5376290-8 (Version None)
Quarter: 2007Q3

REPORT INFORMATION
  Report Type: 
  Country: None (occurrence: None)
  Receive Date: 20070702
  Receipt Date: 20070619
  Transmission Date: 20080115
  Serious: Yes (Hospitalization)
  Sender: FDA-Public Use
  Company Number: US-AVENTIS-200713162US

PATIENT
  Sex: Female
  Weight: 72.7 kg

DRUGS (23)
  1. LANTUS [Suspect]
     Route: 051
     Dates: start: 20070424, end: 20070101
  2. LANTUS [Suspect]
     Dates: start: 20070101
  3. APIDRA [Suspect]
     Dosage: DOSE: SLIDING SCALE
  4. APIDRA [Suspect]
     Dosage: FREQUENCY: AFTER MEALS
     Dates: end: 20070501
  5. APIDRA [Suspect]
     Dosage: FREQUENCY: AFTER MEALS
     Dates: start: 20070501
  6. OPTICLIK (INSULIN INJECTION PEN) [Suspect]
     Dates: start: 20070424
  7. CRESTOR [Concomitant]
  8. PRINIVIL [Concomitant]
  9. PREMARIN [Concomitant]
     Dosage: DOSE: ^0.03^
  10. M.V.I. [Concomitant]
     Dosage: DOSE: UNK
  11. ASPIRIN [Concomitant]
  12. FOLIC ACID [Concomitant]
  13. FUROSEMIDE [Concomitant]
  14. IMDUR [Concomitant]
  15. TRANSDERM NTG [Concomitant]
     Dosage: DOSE: ^0.6MG/MR PATCHMYL^
  16. RANEXA [Concomitant]
     Dates: start: 20070501
  17. COMBIVENT                          /01261001/ [Concomitant]
     Route: 055
  18. COSOPT                             /01419801/ [Concomitant]
     Dosage: DOSE: 2.5ML, ONE DROP IN EACH EYE
     Route: 047
  19. NITROLINGUAL [Concomitant]
     Dosage: DOSE: 2 OR 3 SPRAYS 3-4 TIMES A WEEK
  20. TYLENOL EXTRA STRENGTH [Concomitant]
     Dosage: DOSE: UNK
  21. NORVASC [Concomitant]
  22. XALATAN [Concomitant]
     Dosage: DOSE: ^5%^ IN RIGHT EYE
     Route: 047
  23. LASIX [Concomitant]
     Dosage: DOSE: UNK

REACTIONS (9)
  - ASTHENIA [None]
  - ATELECTASIS [None]
  - BLOOD GLUCOSE INCREASED [None]
  - CHEST PAIN [None]
  - DIZZINESS [None]
  - FEELING ABNORMAL [None]
  - HYPOGLYCAEMIA [None]
  - LUNG DISORDER [None]
  - MALAISE [None]
